FAERS Safety Report 23187989 (Version 3)
Quarter: 2024Q3

REPORT INFORMATION
  Report Type: Spontaneous
  Country: US (occurrence: US)
  Receive Date: 20231115
  Receipt Date: 20240807
  Transmission Date: 20241016
  Serious: No
  Sender: PFIZER
  Company Number: US-PFIZER INC-202300359947

PATIENT
  Age: 4 Year
  Sex: Male

DRUGS (4)
  1. OXBRYTA [Suspect]
     Active Substance: VOXELOTOR
     Indication: Sickle cell anaemia
     Dosage: 900 MG, 1X/DAY
     Route: 048
     Dates: start: 2023
  2. OXBRYTA [Suspect]
     Active Substance: VOXELOTOR
     Dosage: 600 MG, 1X/DAY
  3. MONTELUKAST [Concomitant]
     Active Substance: MONTELUKAST SODIUM
     Dosage: UNK
  4. ALBUTEROL [Concomitant]
     Active Substance: ALBUTEROL
     Dosage: UNK

REACTIONS (2)
  - Vomiting [Unknown]
  - Product use complaint [Unknown]
